FAERS Safety Report 5186253-3 (Version None)
Quarter: 2006Q4

REPORT INFORMATION
  Report Type: 
  Country: None (occurrence: None)
  Receive Date: 20061211
  Receipt Date: 20061201
  Transmission Date: 20070319
  Serious: Yes (Death, Other)
  Sender: FDA-Public Use
  Company Number: 200610328BBE

PATIENT
  Age: 4 Month
  Sex: Female
  Weight: 7 kg

DRUGS (22)
  1. PLASBUMIN-25 [Suspect]
     Dosage: SEE IMAGE
     Dates: start: 20061014
  2. PLASBUMIN-25 [Suspect]
     Dosage: SEE IMAGE
     Dates: start: 20061015
  3. ACETAMINOPHEN [Concomitant]
  4. ADALAT [Concomitant]
  5. CEFOTAXIME [Concomitant]
  6. CODEINE [Concomitant]
  7. DPTP/HIB [Concomitant]
  8. HIB [Concomitant]
  9. ENDOCRINE [Concomitant]
  10. FLAGYL [Concomitant]
  11. HEPALEAN [Concomitant]
  12. LASIX [Concomitant]
  13. MORPHINE [Concomitant]
  14. OCTREOTIDE ACETATE [Concomitant]
  15. PANTOLOC [Concomitant]
  16. PEG-LYTE [Concomitant]
  17. PREVNAR [PNEUMOCOCCAL VACCINE] [Concomitant]
  18. RANITIDINE [Concomitant]
  19. UIRSODIOL [Concomitant]
  20. VANCOMYCIN [Concomitant]
  21. VITAMIN K [Concomitant]
  22. ZANTAC [Concomitant]

REACTIONS (3)
  - BLOOD PRESSURE INCREASED [None]
  - GASTROINTESTINAL DISORDER [None]
  - TRANSFUSION-RELATED ACUTE LUNG INJURY [None]
